FAERS Safety Report 19224652 (Version 2)
Quarter: 2022Q2

REPORT INFORMATION
  Report Type: Spontaneous
  Country: US (occurrence: None)
  Receive Date: 20210505
  Receipt Date: 20220426
  Transmission Date: 20220721
  Serious: No
  Sender: FDA-Public Use
  Company Number: US-ROCHE-2639263

PATIENT
  Sex: Female

DRUGS (8)
  1. ESBRIET [Suspect]
     Active Substance: PIRFENIDONE
     Indication: Idiopathic pulmonary fibrosis
     Route: 048
  2. ESBRIET [Suspect]
     Active Substance: PIRFENIDONE
     Dosage: 1 TABLET
     Route: 048
     Dates: start: 20200710
  3. ASPIRIN [Concomitant]
     Active Substance: ASPIRIN
  4. ATORVASTATIN CALCIUM [Concomitant]
     Active Substance: ATORVASTATIN CALCIUM
  5. CALCITRIOL [Concomitant]
     Active Substance: CALCITRIOL
  6. GABAPENTIN [Concomitant]
     Active Substance: GABAPENTIN
  7. PANTOPRAZOLE SODIUM [Concomitant]
     Active Substance: PANTOPRAZOLE SODIUM
  8. VERAPAMIL HCL [Concomitant]
     Active Substance: VERAPAMIL HYDROCHLORIDE

REACTIONS (3)
  - Weight decreased [Recovered/Resolved]
  - Diarrhoea [Unknown]
  - Decreased appetite [Recovered/Resolved]
